FAERS Safety Report 8272007-8 (Version None)
Quarter: 2012Q1

REPORT INFORMATION
  Report Type: 
  Country: None (occurrence: None)
  Receive Date: 20120308
  Receipt Date: 20111215
  Transmission Date: 20120608
  Serious: No
  Sender: FDA-Public Use
  Company Number: PHEH2011US012032

PATIENT
  Sex: Female

DRUGS (1)
  1. FANAPT [Suspect]
     Indication: SCHIZOPHRENIA
     Dosage: 1 MG, QD

REACTIONS (1)
  - INCONTINENCE [None]
